FAERS Safety Report 8065934-8 (Version None)
Quarter: 2012Q1

REPORT INFORMATION
  Report Type: 
  Country: None (occurrence: None)
  Receive Date: 20120124
  Receipt Date: 20120118
  Transmission Date: 20120608
  Serious: Yes (Hospitalization)
  Sender: FDA-Public Use
  Company Number: GB-PFIZER INC-2011152853

PATIENT

DRUGS (3)
  1. BENDROFLUMETHIAZIDE [Suspect]
  2. RAMIPRIL [Suspect]
     Dosage: UNK
  3. DOXAZOSIN MESYLATE [Suspect]
     Dosage: UNK

REACTIONS (2)
  - DEHYDRATION [None]
  - ORTHOSTATIC HYPOTENSION [None]
